FAERS Safety Report 4844665-9 (Version None)
Quarter: 2005Q4

REPORT INFORMATION
  Report Type: 
  Country: None (occurrence: None)
  Receive Date: 20051205
  Receipt Date: 20051123
  Transmission Date: 20060501
  Serious: Yes (Other)
  Sender: FDA-Public Use
  Company Number: GB-BOEHRINGER INGELHEIM PHARMACEUTICALS, INC.-2005-DE-05136GD

PATIENT
  Age: 71 Year
  Sex: Male

DRUGS (6)
  1. DIPYRIDAMOLE [Suspect]
     Indication: TRANSIENT ISCHAEMIC ATTACK
  2. DIPYRIDAMOLE [Suspect]
     Indication: PROPHYLAXIS
  3. ASPIRIN [Suspect]
     Indication: TRANSIENT ISCHAEMIC ATTACK
  4. ASPIRIN [Suspect]
     Indication: PROPHYLAXIS
  5. CLOPIDOGREL BISULFATE [Suspect]
     Indication: TRANSIENT ISCHAEMIC ATTACK
  6. CLOPIDOGREL BISULFATE [Suspect]
     Indication: PROPHYLAXIS

REACTIONS (4)
  - CEREBRAL INFARCTION [None]
  - DRUG INEFFECTIVE [None]
  - HEMIPLEGIA [None]
  - TRANSIENT ISCHAEMIC ATTACK [None]
